FAERS Safety Report 5669034-3 (Version None)
Quarter: 2008Q1

REPORT INFORMATION
  Report Type: 
  Country: None (occurrence: None)
  Receive Date: 20080313
  Receipt Date: 20080313
  Transmission Date: 20080703
  Serious: Yes (Hospitalization)
  Sender: FDA-Public Use
  Company Number: None

PATIENT
  Sex: Female
  Weight: 4 kg

DRUGS (1)
  1. PREDNISOLONE TAB [Suspect]
     Indication: HAEMANGIOMA
     Dosage: 9 MG DAILY PO
     Route: 048
     Dates: start: 20071116, end: 20080205

REACTIONS (7)
  - BENIGN INTRACRANIAL HYPERTENSION [None]
  - DEHYDRATION [None]
  - FONTANELLE BULGING [None]
  - HYDROCEPHALUS [None]
  - INTRACRANIAL PRESSURE INCREASED [None]
  - PYREXIA [None]
  - VOMITING [None]
